FAERS Safety Report 21851438 (Version 1)
Quarter: 2023Q1

REPORT INFORMATION
  Report Type: Report from Study
  Country: US (occurrence: US)
  Receive Date: 20230112
  Receipt Date: 20230112
  Transmission Date: 20230418
  Serious: No
  Sender: FDA-Public Use
  Company Number: US-ABBVIE-4232699

PATIENT
  Age: 56 Year
  Sex: Female

DRUGS (3)
  1. HUMIRA [Suspect]
     Active Substance: ADALIMUMAB
     Indication: Psoriasis
     Route: 058
  2. HUMIRA [Suspect]
     Active Substance: ADALIMUMAB
     Indication: Hidradenitis
  3. Covid vaccine Pfizer/BioNTech [Concomitant]
     Indication: COVID-19 immunisation
     Dosage: TIME INTERVAL: TOTAL
     Route: 030

REACTIONS (8)
  - Condition aggravated [Not Recovered/Not Resolved]
  - Muscle tightness [Unknown]
  - Swelling face [Unknown]
  - Rash pruritic [Unknown]
  - Pain of skin [Unknown]
  - Melanocytic naevus [Unknown]
  - Scar inflammation [Unknown]
  - Scar pain [Unknown]

NARRATIVE: CASE EVENT DATE: 20221006
